FAERS Safety Report 8289476-X (Version None)
Quarter: 2012Q2

REPORT INFORMATION
  Report Type: 
  Country: None (occurrence: None)
  Receive Date: 20120417
  Receipt Date: 20120410
  Transmission Date: 20120825
  Serious: Yes (Hospitalization)
  Sender: FDA-Public Use
  Company Number: US-B.I. PHARMACEUTICALS,INC./RIDGEFIELD-2012-BP-06735BP

PATIENT
  Sex: Male

DRUGS (5)
  1. SIMCOR [Concomitant]
     Indication: BLOOD CHOLESTEROL INCREASED
     Route: 048
  2. PRADAXA [Suspect]
     Indication: ATRIAL FIBRILLATION
     Dosage: 300 MG
     Route: 048
     Dates: start: 20101101
  3. CARVEDILOL [Concomitant]
     Dosage: 6.25 MG
     Route: 048
  4. METFORMIN HCL [Concomitant]
     Indication: DIABETES MELLITUS
     Dosage: 1500 MG
     Route: 048
  5. LISINOPRIL [Concomitant]
     Indication: HYPERTENSION

REACTIONS (3)
  - AORTIC VALVE REPLACEMENT [None]
  - ILEUS [None]
  - INCISIONAL HERNIA [None]
